FAERS Safety Report 11032084 (Version 2)
Quarter: 2015Q3

REPORT INFORMATION
  Report Type: Spontaneous
  Country: US (occurrence: US)
  Receive Date: 20150415
  Receipt Date: 20150721
  Transmission Date: 20151125
  Serious: No
  Sender: FDA-Public Use
  Company Number: US-GE HEALTHCARE MEDICAL DIAGNOSTICS-PET1-PR-1503S-0002

PATIENT
  Age: 79 Year
  Weight: 83.7 kg

DRUGS (10)
  1. GLIMEPIRIDE. [Concomitant]
     Active Substance: GLIMEPIRIDE
     Dates: start: 20141023
  2. ATORVASTATIN [Concomitant]
     Active Substance: ATORVASTATIN
     Dates: start: 201406
  3. BENAZEPRIL HYDROCHLORIDE. [Concomitant]
     Active Substance: BENAZEPRIL HYDROCHLORIDE
     Dates: start: 201006
  4. CLOPIDOGREL [Concomitant]
     Active Substance: CLOPIDOGREL BISULFATE
     Dates: start: 201206
  5. DONEPEZIL. [Concomitant]
     Active Substance: DONEPEZIL
     Dates: start: 20130615
  6. METOPROLOL [Concomitant]
     Active Substance: METOPROLOL
     Dates: start: 201406
  7. FLUTEMETAMOL [F18] INJECTION [Suspect]
     Active Substance: FLUTEMETAMOL F-18
     Indication: PRODUCT USED FOR UNKNOWN INDICATION
     Route: 042
     Dates: start: 20150318, end: 20150318
  8. FLUTEMETAMOL [F18] INJECTION [Suspect]
     Active Substance: FLUTEMETAMOL F-18
     Indication: DIAGNOSTIC PROCEDURE
  9. ALLOPURINOL. [Concomitant]
     Active Substance: ALLOPURINOL
     Dates: start: 201206
  10. ASPIRIN. [Concomitant]
     Active Substance: ASPIRIN
     Dates: start: 201206

REACTIONS (2)
  - Overdose [Unknown]
  - Blood pressure increased [Recovered/Resolved]

NARRATIVE: CASE EVENT DATE: 20150318
